FAERS Safety Report 19547070 (Version 2)
Quarter: 2021Q3

REPORT INFORMATION
  Report Type: Report from Study
  Country: TW (occurrence: TW)
  Receive Date: 20210714
  Receipt Date: 20210716
  Transmission Date: 20211014
  Serious: Yes (Death)
  Sender: FDA-Public Use
  Company Number: NVSC2021TW156604

PATIENT
  Sex: Male
  Weight: 13.3 kg

DRUGS (1)
  1. AFINITOR [Suspect]
     Active Substance: EVEROLIMUS
     Indication: BRAIN NEOPLASM
     Dosage: 2.5 MG, QD
     Route: 048
     Dates: start: 20210426

REACTIONS (3)
  - Therapy non-responder [Unknown]
  - Brain neoplasm [Fatal]
  - Malignant neoplasm progression [Fatal]
